FAERS Safety Report 17859245 (Version 1)
Quarter: 2020Q2

REPORT INFORMATION
  Report Type: Spontaneous
  Country: US (occurrence: US)
  Receive Date: 20200604
  Receipt Date: 20200604
  Transmission Date: 20200714
  Serious: No
  Sender: FDA-Public Use
  Company Number: US-TARO-2019TAR00445

PATIENT
  Sex: Female

DRUGS (1)
  1. DESOXIMETASONE SPRAY USP 0.25% [Suspect]
     Active Substance: DESOXIMETASONE
     Indication: RASH

REACTIONS (2)
  - Rash [Unknown]
  - Rash erythematous [Unknown]
